FAERS Safety Report 23393630 (Version 1)
Quarter: 2024Q1

REPORT INFORMATION
  Report Type: Spontaneous
  Country: US (occurrence: None)
  Receive Date: 20240111
  Receipt Date: 20240111
  Transmission Date: 20240410
  Serious: Yes (Other)
  Sender: FDA-Public Use
  Company Number: None

PATIENT
  Age: 0 Year
  Sex: Female

DRUGS (1)
  1. NIVESTYM [Suspect]
     Active Substance: FILGRASTIM-AAFI
     Indication: Infantile genetic agranulocytosis
     Dosage: 18MCG QD?

REACTIONS (2)
  - Splenomegaly [None]
  - Therapy interrupted [None]

NARRATIVE: CASE EVENT DATE: 20231128
